FAERS Safety Report 10109467 (Version 1)
Quarter: 2014Q2

REPORT INFORMATION
  Report Type: Spontaneous
  Country: US (occurrence: None)
  Receive Date: 20140421
  Receipt Date: 20140421
  Transmission Date: 20141212
  Serious: No
  Sender: FDA-Public Use
  Company Number: AEGR000298

PATIENT
  Age: 64 Year
  Sex: Male
  Weight: 92.1 kg

DRUGS (3)
  1. JUXTAPID [Suspect]
     Indication: PRODUCT USED FOR UNKNOWN INDICATION
     Route: 048
     Dates: end: 2014
  2. CRESTOR (ROSUVASTATIN CALCIUM) [Concomitant]
  3. TRIBENZOR 9AMLODIPINE BESILATE, HYDROCHLOROTHIAZIDE, OLMESARTAN MEDOXOMIL) [Concomitant]

REACTIONS (2)
  - Product used for unknown indication [None]
  - Nausea [None]
